FAERS Safety Report 23196531 (Version 1)
Quarter: 2023Q4

REPORT INFORMATION
  Report Type: Spontaneous
  Country: RU (occurrence: RU)
  Receive Date: 20231117
  Receipt Date: 20231117
  Transmission Date: 20240109
  Serious: Yes (Other)
  Sender: FDA-Public Use
  Company Number: RU-SERVIER-S23013248

PATIENT

DRUGS (3)
  1. ONCASPAR [Suspect]
     Active Substance: PEGASPARGASE
     Indication: Acute lymphocytic leukaemia
     Dosage: 960 IU, UNK
     Route: 051
     Dates: start: 202212, end: 202212
  2. ONCASPAR [Suspect]
     Active Substance: PEGASPARGASE
     Dosage: 940 IU, UNK
     Route: 051
     Dates: start: 20230112, end: 20230112
  3. DEXAMETHASONE [Concomitant]
     Active Substance: DEXAMETHASONE
     Indication: Premedication
     Dosage: UNK
     Route: 065
     Dates: start: 20230112, end: 20230112

REACTIONS (2)
  - Angioedema [Recovered/Resolved]
  - Disease progression [Unknown]

NARRATIVE: CASE EVENT DATE: 20230112
